FAERS Safety Report 23413669 (Version 4)
Quarter: 2024Q1

REPORT INFORMATION
  Report Type: Spontaneous
  Country: CA (occurrence: CA)
  Receive Date: 20240117
  Receipt Date: 20240321
  Transmission Date: 20240410
  Serious: Yes (Hospitalization, Other)
  Sender: FDA-Public Use
  Company Number: CA-VIIV HEALTHCARE LIMITED-CA2023092787

PATIENT
  Age: 61 Year
  Sex: Male

DRUGS (6)
  1. RILPIVIRINE [Suspect]
     Active Substance: RILPIVIRINE
     Indication: HIV infection
     Dosage: UNK UNK, Q2M
     Route: 030
     Dates: start: 20230609
  2. RILPIVIRINE [Suspect]
     Active Substance: RILPIVIRINE
     Dosage: UNK UNK, Q2M (600MG/3ML CABOTEGRAVIR, 900MG/3ML RILPIVIRINE)
     Route: 030
  3. RILPIVIRINE [Suspect]
     Active Substance: RILPIVIRINE
     Dosage: UNK UNK, Q2M 600MG/3ML CABOTEGRAVIR, 900MG/3ML RILPIVIRINE
     Route: 030
  4. CABOTEGRAVIR [Suspect]
     Active Substance: CABOTEGRAVIR
     Indication: HIV infection
     Dosage: UNK UNK, Q2M
     Route: 030
     Dates: start: 20230609
  5. CABOTEGRAVIR [Suspect]
     Active Substance: CABOTEGRAVIR
     Dosage: UNK UNK, Q2M (600MG/3ML CABOTEGRAVIR, 900MG/3ML RILPIVIRINE)
     Route: 030
  6. CABOTEGRAVIR [Suspect]
     Active Substance: CABOTEGRAVIR
     Dosage: UNK UNK, Q2M 600MG/3ML CABOTEGRAVIR, 900MG/3ML RILPIVIRINE
     Route: 030

REACTIONS (27)
  - Clostridium difficile infection [Unknown]
  - Hospitalisation [Unknown]
  - Asthenia [Unknown]
  - Dehydration [Unknown]
  - Hypotension [Recovering/Resolving]
  - Injection site discomfort [Unknown]
  - Injection site pain [Recovered/Resolved]
  - Condition aggravated [Unknown]
  - Back pain [Unknown]
  - Nephrectomy [Recovered/Resolved]
  - Catheter removal [Unknown]
  - Urinary tract infection [Unknown]
  - Myalgia [Unknown]
  - Gastrointestinal disorder [Unknown]
  - Mucous stools [Unknown]
  - Abnormal faeces [Unknown]
  - Vomiting [Unknown]
  - Diarrhoea [Unknown]
  - Pain [Unknown]
  - Oedema [Recovered/Resolved]
  - Dysbiosis [Unknown]
  - Dizziness [Unknown]
  - Hot flush [Unknown]
  - Headache [Unknown]
  - Nausea [Recovered/Resolved]
  - Musculoskeletal discomfort [Unknown]
  - Head discomfort [Unknown]

NARRATIVE: CASE EVENT DATE: 20230609
